FAERS Safety Report 18748668 (Version 1)
Quarter: 2021Q1

REPORT INFORMATION
  Report Type: Spontaneous
  Country: US (occurrence: US)
  Receive Date: 20210116
  Receipt Date: 20210116
  Transmission Date: 20210419
  Serious: No
  Sender: FDA-Public Use
  Company Number: US-SPECGX-T202000266

PATIENT
  Sex: Female

DRUGS (1)
  1. HYDROMORPHONE [Suspect]
     Active Substance: HYDROMORPHONE
     Indication: PRODUCT USED FOR UNKNOWN INDICATION
     Dosage: UNK (4MG)
     Route: 065

REACTIONS (5)
  - Abdominal distension [Unknown]
  - Nausea [Unknown]
  - Dyspepsia [Unknown]
  - Flatulence [Unknown]
  - Constipation [Unknown]
